FAERS Safety Report 14289287 (Version 2)
Quarter: 2018Q1

REPORT INFORMATION
  Report Type: Report from Study
  Country: US (occurrence: US)
  Receive Date: 20171214
  Receipt Date: 20180109
  Transmission Date: 20180509
  Serious: Yes (Death, Other)
  Sender: FDA-Public Use
  Company Number: US-GILEAD-2017-0310570

PATIENT
  Age: 62 Year
  Sex: Female

DRUGS (10)
  1. AMBRISENTAN [Suspect]
     Active Substance: AMBRISENTAN
     Indication: PULMONARY HYPERTENSION
     Dosage: 10 MG, QD
     Route: 065
  2. SILDENAFIL. [Concomitant]
     Active Substance: SILDENAFIL
  3. COLACE [Concomitant]
     Active Substance: DOCUSATE SODIUM
  4. NOVOLOG [Concomitant]
     Active Substance: INSULIN ASPART
  5. NEXIUM [Concomitant]
     Active Substance: ESOMEPRAZOLE MAGNESIUM
  6. SIMVASTATIN. [Concomitant]
     Active Substance: SIMVASTATIN
  7. APAP W/HYDROCODONE [Concomitant]
     Active Substance: ACETAMINOPHEN\HYDROCODONE
  8. CLARITIN [Concomitant]
     Active Substance: LORATADINE
  9. GABAPENTIN. [Concomitant]
     Active Substance: GABAPENTIN
  10. LANTUS [Concomitant]
     Active Substance: INSULIN GLARGINE

REACTIONS (1)
  - Cardiac arrest [Fatal]

NARRATIVE: CASE EVENT DATE: 20171115
